FAERS Safety Report 6895673-8 (Version None)
Quarter: 2010Q3

REPORT INFORMATION
  Report Type: 
  Country: None (occurrence: None)
  Receive Date: 20100730
  Receipt Date: 20100730
  Transmission Date: 20110219
  Serious: Yes (Hospitalization)
  Sender: FDA-Public Use
  Company Number: None

PATIENT
  Age: 23 Month
  Sex: Male

DRUGS (1)
  1. CLINDAMYCIN [Suspect]
     Indication: CELLULITIS
     Dosage: 120MG TID PO
     Route: 048

REACTIONS (4)
  - DRUG ERUPTION [None]
  - PYREXIA [None]
  - RASH PUSTULAR [None]
  - STAPHYLOCOCCUS TEST POSITIVE [None]
